FAERS Safety Report 11325090 (Version 1)
Quarter: 2015Q3

REPORT INFORMATION
  Report Type: Report from Study
  Country: IT (occurrence: IT)
  Receive Date: 20150730
  Receipt Date: 20150730
  Transmission Date: 20151125
  Serious: Yes (Disabling, Other)
  Sender: FDA-Public Use
  Company Number: IT-INCYTE CORPORATION-2012IN000287

PATIENT
  Age: 74 Year
  Sex: Male
  Weight: 55 kg

DRUGS (3)
  1. INC424 [Suspect]
     Active Substance: RUXOLITINIB
     Indication: MYELOFIBROSIS
     Dosage: 15 MG, BID
     Route: 048
     Dates: start: 20110623, end: 20111018
  2. INC424 [Suspect]
     Active Substance: RUXOLITINIB
     Dosage: 10 MG, BID
     Route: 048
     Dates: start: 20111019, end: 20111108
  3. INC424 [Suspect]
     Active Substance: RUXOLITINIB
     Dosage: 25 MG, UNK
     Route: 048
     Dates: start: 20111109

REACTIONS (6)
  - Pain in extremity [Recovering/Resolving]
  - Abasia [Unknown]
  - Thrombocytopenia [Unknown]
  - Neoplasm [Unknown]
  - Renal failure [Unknown]
  - Urinary tract infection [Unknown]

NARRATIVE: CASE EVENT DATE: 20111018
